FAERS Safety Report 6522118-X (Version None)
Quarter: 2009Q4

REPORT INFORMATION
  Report Type: 
  Country: None (occurrence: None)
  Receive Date: 20091230
  Receipt Date: 20091218
  Transmission Date: 20100525
  Serious: Yes (Other)
  Sender: FDA-Public Use
  Company Number: DE-PFIZER INC-2009292099

PATIENT
  Age: 70 Year
  Sex: Female
  Weight: 75 kg

DRUGS (1)
  1. NEURONTIN [Suspect]
     Indication: DIABETIC NEUROPATHY
     Dosage: 800 MG, 2X/DAY
     Route: 048
     Dates: start: 20030101

REACTIONS (9)
  - CONFUSIONAL STATE [None]
  - DIABETIC COMPLICATION [None]
  - DIPLOPIA [None]
  - DISTURBANCE IN ATTENTION [None]
  - DIZZINESS [None]
  - NAUSEA [None]
  - RESTLESSNESS [None]
  - SLEEP DISORDER [None]
  - TREMOR [None]
